FAERS Safety Report 10150257 (Version 1)
Quarter: 2014Q2

REPORT INFORMATION
  Report Type: Spontaneous
  Country: IL (occurrence: IL)
  Receive Date: 20140502
  Receipt Date: 20140502
  Transmission Date: 20141212
  Serious: Yes (Death)
  Sender: FDA-Public Use
  Company Number: IL-OTSUKA-US-2014-10826

PATIENT
  Sex: 0

DRUGS (4)
  1. BUSULFEX [Suspect]
     Indication: STEM CELL TRANSPLANT
     Dosage: 12.8 MG/KG, UNK
     Route: 042
  2. BUSULFEX [Suspect]
     Dosage: 6.4 MG/KG, UNK
     Route: 042
  3. CYCLOPHOSPHAMIDE [Suspect]
     Indication: STEM CELL TRANSPLANT
     Dosage: UNK
     Route: 065
  4. FLUDARABINE [Suspect]
     Indication: STEM CELL TRANSPLANT
     Dosage: UNK
     Route: 065

REACTIONS (1)
  - Death [Fatal]
